FAERS Safety Report 25428760 (Version 1)
Quarter: 2025Q2

REPORT INFORMATION
  Report Type: Spontaneous
  Country: US (occurrence: None)
  Receive Date: 20250611
  Receipt Date: 20250611
  Transmission Date: 20250716
  Serious: No
  Sender: FDA-CTU
  Company Number: None

PATIENT
  Age: 25 Year
  Sex: Male
  Weight: 148.5 kg

DRUGS (9)
  1. QELBREE [Suspect]
     Active Substance: VILOXAZINE HYDROCHLORIDE
     Indication: Attention deficit hyperactivity disorder
     Route: 048
     Dates: start: 20250529, end: 20250610
  2. LAMOTRIGINE [Concomitant]
     Active Substance: LAMOTRIGINE
  3. ENBREL [Concomitant]
     Active Substance: ETANERCEPT
  4. NAPROXEN [Concomitant]
     Active Substance: NAPROXEN
  5. ACETAMINOPHEN [Concomitant]
     Active Substance: ACETAMINOPHEN
  6. ARGININE [Concomitant]
     Active Substance: ARGININE
  7. CITRULLINE [Concomitant]
     Active Substance: CITRULLINE
  8. ACETYLCYSTEINE [Concomitant]
     Active Substance: ACETYLCYSTEINE
  9. 7-HYDROXYMITRAGYNINE [Concomitant]
     Active Substance: 7-HYDROXYMITRAGYNINE

REACTIONS (14)
  - Therapy interrupted [None]
  - Suicidal ideation [None]
  - Fatigue [None]
  - Akathisia [None]
  - Pain [None]
  - Attention deficit hyperactivity disorder [None]
  - Condition aggravated [None]
  - Withdrawal syndrome [None]
  - Nausea [None]
  - Vomiting [None]
  - Diarrhoea [None]
  - Migraine [None]
  - Muscle spasms [None]
  - Pyrexia [None]

NARRATIVE: CASE EVENT DATE: 20250529
